FAERS Safety Report 10977901 (Version 1)
Quarter: 2015Q2

REPORT INFORMATION
  Report Type: Spontaneous
  Country: GB (occurrence: GB)
  Receive Date: 20150402
  Receipt Date: 20150402
  Transmission Date: 20150821
  Serious: Yes (Other)
  Sender: FDA-Public Use
  Company Number: GB-BAYER-2015-093916

PATIENT
  Age: 27 Year
  Sex: Female
  Weight: 80 kg

DRUGS (1)
  1. MIRENA [Suspect]
     Active Substance: LEVONORGESTREL
     Indication: ENDOMETRIOSIS
     Dosage: UNK
     Route: 067

REACTIONS (2)
  - Drug withdrawal syndrome [Not Recovered/Not Resolved]
  - Vulvovaginal warts [Not Recovered/Not Resolved]

NARRATIVE: CASE EVENT DATE: 20150301
